FAERS Safety Report 7257526-5 (Version None)
Quarter: 2011Q1

REPORT INFORMATION
  Report Type: 
  Country: None (occurrence: None)
  Receive Date: 20110129
  Receipt Date: 20100518
  Transmission Date: 20110831
  Serious: Yes (Other)
  Sender: FDA-Public Use
  Company Number: US-ABBOTT-10P-163-0635904-00

PATIENT
  Sex: Female
  Weight: 68.1 kg

DRUGS (1)
  1. HUMIRA [Suspect]
     Indication: CROHN'S DISEASE
     Dosage: 40 MG Q 2 WEEKS TO QW
     Dates: start: 20060301, end: 20080901

REACTIONS (5)
  - ARTHRITIS [None]
  - THYROIDITIS ACUTE [None]
  - POLYARTHRITIS [None]
  - VASCULITIS [None]
  - SYSTEMIC LUPUS ERYTHEMATOSUS [None]
